FAERS Safety Report 8476014-1 (Version None)
Quarter: 2012Q2

REPORT INFORMATION
  Report Type: 
  Country: None (occurrence: None)
  Receive Date: 20120628
  Receipt Date: 20120618
  Transmission Date: 20120825
  Serious: Yes (Hospitalization)
  Sender: FDA-Public Use
  Company Number: FR-ASTRAZENECA-2012SE41600

PATIENT
  Age: 702 Month
  Sex: Male

DRUGS (2)
  1. CELOCURINE [Concomitant]
     Dates: start: 20120524, end: 20120524
  2. DIPRIVAN [Suspect]
     Route: 042
     Dates: start: 20120524, end: 20120524

REACTIONS (3)
  - OXYGEN SATURATION DECREASED [None]
  - ERYTHEMA [None]
  - BRONCHOSPASM [None]
